FAERS Safety Report 4629455-4 (Version None)
Quarter: 2005Q2

REPORT INFORMATION
  Report Type: 
  Country: None (occurrence: None)
  Receive Date: 20050405
  Receipt Date: 20050330
  Transmission Date: 20051028
  Serious: Yes (Death, Life-Threatening, Other)
  Sender: FDA-Public Use
  Company Number: GB-2005-003762

PATIENT
  Age: 65 Year
  Sex: Female
  Weight: 82.8 kg

DRUGS (22)
  1. FLUDARABINE PHOSPHATE [Suspect]
     Indication: ACUTE MYELOID LEUKAEMIA
     Dosage: 60 MG, 1X/DAY
     Dates: start: 20050221, end: 20050226
  2. CYTARABINE [Concomitant]
  3. IDARUBICIN HCL [Concomitant]
  4. G-CSF (GRANULOCYTE COLONY STIMULATING FACTOR) [Concomitant]
  5. GRANISETRON [Concomitant]
  6. DEXAMETHASONE [Concomitant]
  7. PREDNISOLONE [Concomitant]
  8. AZTREONAM [Concomitant]
  9. GENTAMICIN [Concomitant]
  10. TAMOXIFEN CITRATE [Concomitant]
  11. NASEPTIN (CHLORHEXIDINE HYDROCHLORIDE) [Concomitant]
  12. ALLOPURINOL [Concomitant]
  13. CIPROFLOXACIN [Concomitant]
  14. FRUSEMIDE [Concomitant]
  15. BLOOD AND RELATED PRODUCTS [Concomitant]
  16. ACYCLOVIR [Concomitant]
  17. ITRACONAZOLE [Concomitant]
  18. GLICLAZIDE [Concomitant]
  19. METRONIDAZOLE [Concomitant]
  20. TRANEXAMIC ACID [Concomitant]
  21. METFORMIN HCL [Concomitant]
  22. TEICOPLANIN [Concomitant]

REACTIONS (8)
  - BLOOD GLUCOSE ABNORMAL [None]
  - BLOOD PH DECREASED [None]
  - BLOOD PRESSURE ABNORMAL [None]
  - LACTIC ACIDOSIS [None]
  - LOWER RESPIRATORY TRACT INFECTION [None]
  - MALAISE [None]
  - METABOLIC ACIDOSIS [None]
  - NEUTROPENIC SEPSIS [None]
